FAERS Safety Report 5767582-9 (Version None)
Quarter: 2008Q2

REPORT INFORMATION
  Report Type: 
  Country: None (occurrence: None)
  Receive Date: 20080611
  Receipt Date: 20080611
  Transmission Date: 20081010
  Serious: Yes (Hospitalization)
  Sender: FDA-Public Use
  Company Number: None

PATIENT
  Age: 39 Year
  Sex: Female
  Weight: 158.5 kg

DRUGS (7)
  1. BYETTA [Suspect]
     Indication: TYPE 2 DIABETES MELLITUS
     Dosage: ONE INJECTION BID SQ
     Route: 058
     Dates: start: 20080529, end: 20080604
  2. ZOCOR [Concomitant]
  3. GLIPIZIDE [Concomitant]
  4. GLUCOPHAGE [Concomitant]
  5. QUINAPRIL [Concomitant]
  6. ADVIL [Concomitant]
  7. CEFTRIAXONE [Concomitant]

REACTIONS (1)
  - ABDOMINAL PAIN [None]
